FAERS Safety Report 6745981-6 (Version None)
Quarter: 2010Q2

REPORT INFORMATION
  Report Type: 
  Country: None (occurrence: None)
  Receive Date: 20100526
  Receipt Date: 20100511
  Transmission Date: 20101027
  Serious: Yes (Hospitalization)
  Sender: FDA-Public Use
  Company Number: BCN-AS-2010RR-057

PATIENT
  Age: 26 Year
  Sex: Female

DRUGS (6)
  1. LORAZEPAM [Suspect]
     Dosage: 1.5MG/DAY
  2. AMISULPRIDE (AMISULPRIDE) [Suspect]
     Dosage: 200-400MG/DAY
     Dates: end: 20050101
  3. QUETIAPINE [Suspect]
     Dosage: {200MG/DAY
  4. ARIPIPRAZOLE [Suspect]
     Dosage: {10MG/DAY
  5. CLOZAPINE [Suspect]
     Dosage: {50MG/DAY
  6. BIPERIDEN HYDROCHLORIDE TAB [Suspect]
     Dosage: 1.5MG/DAY

REACTIONS (14)
  - ANXIETY [None]
  - CONDITION AGGRAVATED [None]
  - DELUSION OF REFERENCE [None]
  - DYSPHAGIA [None]
  - DYSPHONIA [None]
  - DYSPNOEA [None]
  - HALLUCINATION, AUDITORY [None]
  - MYASTHENIA GRAVIS [None]
  - OXYGEN SATURATION DECREASED [None]
  - PSYCHOTIC DISORDER [None]
  - RESPIRATORY FAILURE [None]
  - SALIVARY HYPERSECRETION [None]
  - TARDIVE DYSKINESIA [None]
  - THOUGHT BROADCASTING [None]
